FAERS Safety Report 10390855 (Version 1)
Quarter: 2014Q3

REPORT INFORMATION
  Report Type: Spontaneous
  Country: US (occurrence: None)
  Receive Date: 20140815
  Receipt Date: 20140815
  Transmission Date: 20150326
  Serious: Yes (Hospitalization)
  Sender: FDA-Public Use
  Company Number: 20120424VANCO2925

PATIENT
  Age: 96 Year
  Sex: Male

DRUGS (1)
  1. VANCOCIN [Suspect]
     Active Substance: VANCOMYCIN HYDROCHLORIDE
     Indication: CLOSTRIDIUM DIFFICILE INFECTION
     Dosage: 500MG, 1 IN 6 HR, ORAL??CLOSTRIDIUM DIFFICILE INFECTION (CLOSTRIDIUM DIFFICILE INFECTION)
     Route: 048
     Dates: start: 201202, end: 20120417

REACTIONS (6)
  - Pneumonia [None]
  - Clostridium difficile infection [None]
  - Antibiotic level below therapeutic [None]
  - Infected skin ulcer [None]
  - Urinary tract infection [None]
  - Nephropathy toxic [None]

NARRATIVE: CASE EVENT DATE: 20120417
